FAERS Safety Report 7981894-X (Version None)
Quarter: 2011Q4

REPORT INFORMATION
  Report Type: 
  Country: None (occurrence: None)
  Receive Date: 20111215
  Receipt Date: 20111207
  Transmission Date: 20120403
  Serious: Yes (Hospitalization)
  Sender: FDA-Public Use
  Company Number: PL-JNJFOC-20111206040

PATIENT
  Age: 3 Year
  Sex: Male

DRUGS (2)
  1. ZYRTEC [Suspect]
     Indication: HYPERSENSITIVITY
     Route: 065
     Dates: start: 20100101, end: 20111101
  2. ZYRTEC [Suspect]
     Route: 065
     Dates: start: 20111107

REACTIONS (4)
  - WITHDRAWAL SYNDROME [None]
  - PYREXIA [None]
  - RHINITIS [None]
  - WRONG DRUG ADMINISTERED [None]
